FAERS Safety Report 8114824-0 (Version None)
Quarter: 2012Q1

REPORT INFORMATION
  Report Type: 
  Country: None (occurrence: None)
  Receive Date: 20120202
  Receipt Date: 20120202
  Transmission Date: 20120608
  Serious: Yes (Hospitalization)
  Sender: FDA-Public Use
  Company Number: None

PATIENT
  Sex: Female
  Weight: 68.0396 kg

DRUGS (1)
  1. TRIBENZOR [Suspect]
     Indication: HYPERTENSION
     Dosage: 1 TABLET 1 PER DAY MOUTH
     Route: 048
     Dates: start: 20111204

REACTIONS (4)
  - MOVEMENT DISORDER [None]
  - BLOOD POTASSIUM DECREASED [None]
  - DEHYDRATION [None]
  - SYNCOPE [None]
